FAERS Safety Report 10377009 (Version 2)
Quarter: 2014Q3

REPORT INFORMATION
  Report Type: Report from Study
  Country: JP (occurrence: JP)
  Receive Date: 20140812
  Receipt Date: 20140812
  Transmission Date: 20150326
  Serious: Yes (Death, Other)
  Sender: FDA-Public Use
  Company Number: JP-009507513-1406JPN006701

PATIENT
  Age: 82 Year
  Sex: Female
  Weight: 50 kg

DRUGS (16)
  1. TEMODAL [Suspect]
     Active Substance: TEMOZOLOMIDE
     Dosage: 115 MG/M2, QD
     Route: 041
     Dates: start: 20130603, end: 20130607
  2. TEMODAL [Suspect]
     Active Substance: TEMOZOLOMIDE
     Dosage: 115 MG/M2, QD
     Route: 041
     Dates: start: 20130729, end: 20130802
  3. TEMODAL [Suspect]
     Active Substance: TEMOZOLOMIDE
     Dosage: 115 MG/M2, QD
     Route: 041
     Dates: start: 20130701, end: 20130705
  4. TEMODAL [Suspect]
     Active Substance: TEMOZOLOMIDE
     Indication: GLIOBLASTOMA MULTIFORME
     Dosage: DAILY DOSE UNKNOWN
     Route: 048
     Dates: start: 20121207, end: 20130206
  5. AMLODIPINE BESYLATE. [Concomitant]
     Active Substance: AMLODIPINE BESYLATE
     Dosage: DAILY DOSE UNKNOWN, FORMULATION POR
     Route: 048
     Dates: end: 20130919
  6. PLATIBIT [Concomitant]
     Dosage: DAILY DOSE UNKNOWN
     Route: 048
     Dates: end: 20130919
  7. UBRETID [Concomitant]
     Active Substance: DISTIGMINE BROMIDE
     Dosage: DAILY DOSE UNKNOWN
     Route: 048
     Dates: end: 20130919
  8. TEMODAL [Suspect]
     Active Substance: TEMOZOLOMIDE
     Dosage: 115 MG/M2, QD
     Route: 041
     Dates: start: 20130826, end: 20130830
  9. GRANISETRON HYDROCHLORIDE. [Concomitant]
     Active Substance: GRANISETRON HYDROCHLORIDE
     Indication: PROPHYLAXIS
     Dosage: DAILY DOSE UNKNOWN
     Route: 041
     Dates: start: 20130304, end: 20130830
  10. LEUCON (ADENINE) [Concomitant]
     Indication: WHITE BLOOD CELL COUNT DECREASED
     Dosage: DAILY DOSAGE UNKNOWN
     Route: 048
     Dates: end: 20130919
  11. TEMODAL [Suspect]
     Active Substance: TEMOZOLOMIDE
     Indication: GLIOBLASTOMA MULTIFORME
     Dosage: 115 MG/M2, QD
     Route: 041
     Dates: start: 20130304, end: 20130308
  12. TEMODAL [Suspect]
     Active Substance: TEMOZOLOMIDE
     Dosage: 115 MG/M2, QD
     Route: 041
     Dates: start: 20130401, end: 20130405
  13. TEMODAL [Suspect]
     Active Substance: TEMOZOLOMIDE
     Dosage: 115 MG/M2, QD
     Route: 041
     Dates: start: 20130507, end: 20130511
  14. OLMETEC [Concomitant]
     Active Substance: OLMESARTAN MEDOXOMIL
     Dosage: DAILY DOSE UNKNOWN
     Route: 048
     Dates: end: 20130912
  15. TEMODAL [Suspect]
     Active Substance: TEMOZOLOMIDE
     Dosage: UNK
  16. OPAPROSMON [Concomitant]
     Active Substance: LIMAPROST
     Dosage: DAILY DOSE UNKNOWN
     Route: 048
     Dates: end: 20130919

REACTIONS (6)
  - Lymphocyte count decreased [Recovered/Resolved]
  - Alanine aminotransferase increased [Recovered/Resolved]
  - Lymphocyte count decreased [Recovered/Resolved]
  - Disease progression [Fatal]
  - White blood cell count decreased [Recovered/Resolved]
  - Gamma-glutamyltransferase increased [Recovered/Resolved]

NARRATIVE: CASE EVENT DATE: 20130810
